FAERS Safety Report 9685087 (Version 1)
Quarter: 2013Q4

REPORT INFORMATION
  Report Type: Spontaneous
  Country: FR (occurrence: FR)
  Receive Date: 20131113
  Receipt Date: 20131113
  Transmission Date: 20140711
  Serious: Yes (Other)
  Sender: FDA-Public Use
  Company Number: FR-JNJFOC-20131103312

PATIENT
  Age: 40 Year
  Sex: Female

DRUGS (7)
  1. REMICADE [Suspect]
     Indication: PRODUCT USED FOR UNKNOWN INDICATION
     Route: 042
     Dates: start: 20120625
  2. REMICADE [Suspect]
     Indication: PRODUCT USED FOR UNKNOWN INDICATION
     Route: 042
     Dates: start: 20120514
  3. REMICADE [Suspect]
     Indication: PRODUCT USED FOR UNKNOWN INDICATION
     Route: 042
     Dates: start: 20120601
  4. REMICADE [Suspect]
     Indication: PRODUCT USED FOR UNKNOWN INDICATION
     Route: 042
     Dates: start: 20120918, end: 20120918
  5. ANDROCUR [Concomitant]
     Dosage: 1 DF (DOSE FACTOR) PER DAY.
     Route: 048
     Dates: start: 2008
  6. METHOTREXATE [Concomitant]
     Route: 048
     Dates: start: 201010
  7. BI-PROFENID [Concomitant]
     Route: 048
     Dates: start: 2008

REACTIONS (2)
  - Abscess [Recovered/Resolved]
  - Acne [Recovering/Resolving]
